FAERS Safety Report 9973288 (Version 2)
Quarter: 2014Q1

REPORT INFORMATION
  Report Type: Report from Study
  Country: PR (occurrence: PR)
  Receive Date: 20140306
  Receipt Date: 20140306
  Transmission Date: 20141002
  Serious: No
  Sender: FDA-Public Use
  Company Number: PR-ABBVIE-13P-131-1139994-00

PATIENT
  Age: 61 Year
  Sex: Female
  Weight: 83.99 kg

DRUGS (8)
  1. HUMIRA [Suspect]
     Indication: RHEUMATOID ARTHRITIS
     Route: 058
     Dates: start: 201306, end: 201307
  2. HUMIRA [Suspect]
     Route: 058
     Dates: start: 20130807, end: 20130828
  3. HUMIRA [Suspect]
     Route: 058
     Dates: start: 20131002
  4. METHOTREXATE [Concomitant]
     Indication: RHEUMATOID ARTHRITIS
     Route: 048
  5. SYNTHROID [Concomitant]
     Indication: HYPOTHYROIDISM
     Route: 048
  6. CALTRATE [Concomitant]
     Indication: VITAMIN SUPPLEMENTATION
     Route: 048
  7. VITAMIN B [Concomitant]
     Indication: VITAMIN SUPPLEMENTATION
     Route: 048
  8. FOLIC ACID [Concomitant]
     Indication: VITAMIN SUPPLEMENTATION
     Route: 048

REACTIONS (2)
  - Haemorrhoids [Recovered/Resolved]
  - Haemorrhoids [Recovered/Resolved]
